FAERS Safety Report 4899537-0 (Version None)
Quarter: 2006Q1

REPORT INFORMATION
  Report Type: 
  Country: None (occurrence: None)
  Receive Date: 20060131
  Receipt Date: 20060115
  Transmission Date: 20060701
  Serious: Yes (Death)
  Sender: FDA-Public Use
  Company Number: 2006BI001186

PATIENT
  Age: 64 Year
  Sex: Male

DRUGS (6)
  1. ZEVALIN [Suspect]
     Indication: NON-HODGKIN'S LYMPHOMA
     Dosage: 0.4 MCI/KG; 1X; IV
     Route: 042
     Dates: start: 20051215, end: 20051215
  2. RITUXIMIAB [Concomitant]
  3. FLUDARABINE PHOSPHATE [Concomitant]
  4. CYCLOPHOSPHAMIDE [Concomitant]
  5. THIOTEPA [Concomitant]
  6. ANTIBIOTICS [Concomitant]

REACTIONS (2)
  - ESCHERICHIA SEPSIS [None]
  - SEPTIC SHOCK [None]
